FAERS Safety Report 5024803-8 (Version None)
Quarter: 2006Q2

REPORT INFORMATION
  Report Type: 
  Country: None (occurrence: None)
  Receive Date: 20060613
  Receipt Date: 20060605
  Transmission Date: 20061013
  Serious: Yes (Other)
  Sender: FDA-Public Use
  Company Number: PHEH2006US07314

PATIENT
  Age: 79 Year
  Sex: Female

DRUGS (3)
  1. MIACALCIN [Suspect]
     Indication: OSTEOPOROSIS
     Dosage: 200 IU, QD
     Dates: start: 20060523, end: 20060604
  2. ZANTAC [Concomitant]
  3. MEGACE [Concomitant]

REACTIONS (2)
  - DYSPEPSIA [None]
  - HAEMATEMESIS [None]
